FAERS Safety Report 8861652 (Version 1)
Quarter: 2012Q4

REPORT INFORMATION
  Report Type: 
  Country: US (occurrence: US)
  Receive Date: 20121025
  Receipt Date: 20121025
  Transmission Date: 20130627
  Serious: No
  Sender: FDA-Public Use
  Company Number: US-AMGEN-USASP2012019159

PATIENT
  Sex: Male
  Weight: 80.27 kg

DRUGS (5)
  1. ENBREL [Suspect]
     Indication: PRODUCT USED FOR UNKNOWN INDICATION
     Dosage: 50 mg, 2 times/wk
     Route: 058
  2. ATIVAN [Concomitant]
     Dosage: 0.5 mg, UNK
  3. PROTOPIC [Concomitant]
     Dosage: .03 %, UNK
  4. CLOBETASOL 0.05% [Concomitant]
  5. CLOBETA                            /00337102/ [Concomitant]

REACTIONS (4)
  - Disorientation [Unknown]
  - Pain [Unknown]
  - Feeling cold [Unknown]
  - Vision blurred [Unknown]
